FAERS Safety Report 10737844 (Version 7)
Quarter: 2016Q1

REPORT INFORMATION
  Report Type: Spontaneous
  Country: US (occurrence: None)
  Receive Date: 20150122
  Receipt Date: 20160302
  Transmission Date: 20160525
  Serious: Yes (Other)
  Sender: FDA-Public Use
  Company Number: ADR-2015-00126

PATIENT
  Age: 50 Year
  Sex: Female

DRUGS (2)
  1. BACLOFEN INTRATHECAL 100MCG/ML [Suspect]
     Active Substance: BACLOFEN
     Indication: PAIN
     Dosage: 37.93MCG/DAY
  2. HYDROMORPHONE INTRATHECAL 10MG/ML [Suspect]
     Active Substance: HYDROMORPHONE
     Indication: PAIN
     Dosage: 3.793MG/DAY

REACTIONS (40)
  - Back pain [None]
  - Insomnia [None]
  - Dyspnoea [None]
  - Paraesthesia [None]
  - Medical device site pain [None]
  - Vomiting [None]
  - Device deployment issue [None]
  - Device infusion issue [None]
  - Pain [None]
  - Chest pain [None]
  - Post-traumatic pain [None]
  - Neoplasm malignant [None]
  - Performance status decreased [None]
  - Pain in extremity [None]
  - Nerve injury [None]
  - Patella fracture [None]
  - Urethral polyp [None]
  - Thrombosis [None]
  - Road traffic accident [None]
  - Medical device site haemorrhage [None]
  - Post-traumatic neck syndrome [None]
  - Frustration tolerance decreased [None]
  - Hypoaesthesia [None]
  - Skeletal injury [None]
  - No therapeutic response [None]
  - Post procedural haemorrhage [None]
  - Device inversion [None]
  - Abasia [None]
  - Gait disturbance [None]
  - Post procedural infection [None]
  - Somnolence [None]
  - Device ineffective [None]
  - Muscle spasms [None]
  - Sensory disturbance [None]
  - Internal haemorrhage [None]
  - Neck pain [None]
  - Rib fracture [None]
  - Drug tolerance [None]
  - Iatrogenic injury [None]
  - Device damage [None]
